FAERS Safety Report 9012490 (Version 2)
Quarter: 2013Q1

REPORT INFORMATION
  Report Type: Spontaneous
  Country: US (occurrence: US)
  Receive Date: 20130114
  Receipt Date: 20130205
  Transmission Date: 20140127
  Serious: No
  Sender: FDA-Public Use
  Company Number: US-PFIZER INC-2013010892

PATIENT
  Age: 90 Year
  Sex: Female

DRUGS (13)
  1. ZYVOX [Suspect]
     Dosage: 1 DF, 2X/DAY
     Route: 048
     Dates: start: 20121024, end: 20121115
  2. LASIX [Concomitant]
     Dosage: 40 MG, 1X/DAY
  3. APAP [Concomitant]
     Dosage: 325 MG, 2 TABS, EVERY 4 HRS
  4. LACTOBACILLUS ACIDOPHILUS [Concomitant]
     Dosage: 1 DF, 1X/DAY
  5. CALCITRIOL [Concomitant]
     Dosage: 0.25MG, 2 TAB, M-W-F
  6. IMODIUM [Concomitant]
     Dosage: 4 MG, AS NEEDED
  7. AMLODIPINE [Concomitant]
     Dosage: 10 MG, 1X/DAY
  8. CLONIDINE [Concomitant]
     Dosage: 0.05 MG, 2X/DAY
  9. CARVEDILOL [Concomitant]
     Dosage: 12.5 MG, 2X/DAY
  10. SIMVASTATIN [Concomitant]
     Dosage: 20 MG, 1X/DAY
  11. LEVOTHYROXINE [Concomitant]
     Dosage: 50 UG, 1X/DAY
  12. ASA [Concomitant]
     Dosage: 325 MG, 1X/DAY
  13. LANSOPRAZOLE [Concomitant]
     Dosage: 30 MG, 1X/DAY

REACTIONS (2)
  - Oral fungal infection [Recovered/Resolved]
  - Dysphagia [Unknown]
